FAERS Safety Report 19236935 (Version 1)
Quarter: 2021Q2

REPORT INFORMATION
  Report Type: Spontaneous
  Country: US (occurrence: US)
  Receive Date: 20210507
  Receipt Date: 20210507
  Transmission Date: 20210717
  Serious: Yes (Death)
  Sender: FDA-Public Use
  Company Number: None

PATIENT
  Age: 89 Year
  Sex: Male
  Weight: 106.59 kg

DRUGS (2)
  1. TECARTUS [Suspect]
     Active Substance: BREXUCABTAGENE AUTOLEUCEL
     Indication: MANTLE CELL LYMPHOMA
     Dosage: ?          OTHER DOSE:2X10^8/KG;?
     Route: 042
     Dates: start: 20210310, end: 20210312
  2. TECARTUS [Suspect]
     Active Substance: BREXUCABTAGENE AUTOLEUCEL
     Indication: IMMUNOGLOBULIN THERAPY
     Dates: start: 20210315

REACTIONS (10)
  - Immune effector cell-associated neurotoxicity syndrome [None]
  - Shock haemorrhagic [None]
  - Pneumonia [None]
  - Electrocardiogram ST segment elevation [None]
  - Confusional state [None]
  - Bradycardia [None]
  - Hypotension [None]
  - C-reactive protein increased [None]
  - Serum ferritin increased [None]
  - Ulcer haemorrhage [None]

NARRATIVE: CASE EVENT DATE: 20210422
